FAERS Safety Report 7906831-5 (Version None)
Quarter: 2011Q4

REPORT INFORMATION
  Report Type: 
  Country: None (occurrence: None)
  Receive Date: 20111109
  Receipt Date: 20111109
  Transmission Date: 20120403
  Serious: Yes (Other)
  Sender: FDA-Public Use
  Company Number: None

PATIENT
  Age: 42 Year
  Sex: Female
  Weight: 63.6 kg

DRUGS (2)
  1. CYMBALTA [Suspect]
     Indication: GENERALISED ANXIETY DISORDER
     Dosage: 60 MG DAILY 047-ORAL
     Route: 048
     Dates: start: 20040101, end: 20110101
  2. CYMBALTA [Suspect]
     Indication: PREMENSTRUAL SYNDROME
     Dosage: 60 MG DAILY 047-ORAL
     Route: 048
     Dates: start: 20040101, end: 20110101

REACTIONS (15)
  - ASTHENIA [None]
  - MALAISE [None]
  - IRRITABILITY [None]
  - APHASIA [None]
  - TREMOR [None]
  - CONFUSIONAL STATE [None]
  - DRUG WITHDRAWAL SYNDROME [None]
  - NAUSEA [None]
  - FAMILY STRESS [None]
  - IMPAIRED WORK ABILITY [None]
  - DRUG DOSE OMISSION [None]
  - DIZZINESS [None]
  - VOMITING [None]
  - PALPITATIONS [None]
  - QUALITY OF LIFE DECREASED [None]
